FAERS Safety Report 5838927-6 (Version None)
Quarter: 2008Q3

REPORT INFORMATION
  Report Type: 
  Country: None (occurrence: None)
  Receive Date: 20080808
  Receipt Date: 20080730
  Transmission Date: 20090109
  Serious: Yes (Hospitalization, Other)
  Sender: FDA-Public Use
  Company Number: PHHY2008JP10047

PATIENT
  Sex: Male

DRUGS (7)
  1. GLEEVEC [Suspect]
     Indication: CHRONIC MYELOID LEUKAEMIA
     Dosage: 400 MG, QD
     Route: 048
     Dates: start: 20010209
  2. GLEEVEC [Suspect]
     Dosage: 400 MG, QD
     Route: 048
     Dates: start: 20020101, end: 20080602
  3. ALLOPURINOL [Concomitant]
     Indication: CHRONIC MYELOID LEUKAEMIA
     Dosage: 100 MG/DAY
     Route: 048
     Dates: start: 19990423
  4. NORVASC [Concomitant]
     Indication: HYPERTENSION
     Dosage: 2.5 MG/DAY
     Dates: start: 19991119
  5. ASPIRIN [Concomitant]
     Dosage: 100 MG/DAY
     Dates: start: 20041228
  6. GASTER D [Concomitant]
     Indication: GASTRITIS
     Dosage: 20 MG/DAY
     Dates: start: 19990423
  7. URSO 250 [Concomitant]
     Indication: LIVER DISORDER
     Dosage: 150 MG/DAY
     Dates: start: 20000414

REACTIONS (10)
  - ATRIOVENTRICULAR BLOCK [None]
  - BLOOD SODIUM DECREASED [None]
  - BRADYCARDIA [None]
  - CARDIAC PACEMAKER INSERTION [None]
  - DYSPNOEA EXERTIONAL [None]
  - HAEMOGLOBIN DECREASED [None]
  - HEART RATE DECREASED [None]
  - MALAISE [None]
  - RED BLOOD CELL COUNT DECREASED [None]
  - WHITE BLOOD CELL COUNT DECREASED [None]
